FAERS Safety Report 6693070-1 (Version None)
Quarter: 2010Q2

REPORT INFORMATION
  Report Type: 
  Country: None (occurrence: None)
  Receive Date: 20100422
  Receipt Date: 20100419
  Transmission Date: 20101027
  Serious: Yes (Death, Other)
  Sender: FDA-Public Use
  Company Number: ES-ELI_LILLY_AND_COMPANY-ES201004005231

PATIENT

DRUGS (3)
  1. GEMCITABINE HCL [Suspect]
     Indication: METASTATIC RENAL CELL CARCINOMA
     Dosage: 1000 MG/M2, DAY 1 AND 8 OF 21 DAY CYCLE
     Route: 042
  2. CAPECITABINE [Concomitant]
     Indication: METASTATIC RENAL CELL CARCINOMA
     Dosage: UNK, DAILY (1/D)
     Route: 048
  3. SORAFENIB [Concomitant]
     Indication: METASTATIC RENAL CELL CARCINOMA
     Dosage: 400 MG, 2/D
     Route: 048

REACTIONS (1)
  - PULMONARY EMBOLISM [None]
